FAERS Safety Report 5229374-9 (Version None)
Quarter: 2007Q1

REPORT INFORMATION
  Report Type: 
  Country: None (occurrence: None)
  Receive Date: 20061201
  Receipt Date: 20060912
  Transmission Date: 20070707
  Serious: No
  Sender: FDA-Public Use
  Company Number: 2006PV021103

PATIENT
  Age: 69 Year
  Sex: Female

DRUGS (6)
  1. BYETTA [Suspect]
     Indication: DIABETES MELLITUS NON-INSULIN-DEPENDENT
     Dosage: 5 MCG; BID; SC
     Route: 058
     Dates: start: 20060901, end: 20060912
  2. GLUCOTROL [Concomitant]
  3. AVANDIA [Concomitant]
  4. GLUCOTROL [Concomitant]
  5. AVANDIA [Concomitant]
  6. CINNAMON CAPSULE [Concomitant]

REACTIONS (3)
  - BLOOD GLUCOSE DECREASED [None]
  - BLOOD GLUCOSE INCREASED [None]
  - OESOPHAGITIS [None]
